FAERS Safety Report 7477354-5 (Version None)
Quarter: 2011Q2

REPORT INFORMATION
  Report Type: 
  Country: None (occurrence: None)
  Receive Date: 20110513
  Receipt Date: 20110503
  Transmission Date: 20111010
  Serious: No
  Sender: FDA-Public Use
  Company Number: US-BIOGENIDEC-2011BI016659

PATIENT
  Age: 55 Year
  Sex: Male

DRUGS (1)
  1. TYSABRI [Suspect]
     Indication: MULTIPLE SCLEROSIS
     Route: 042
     Dates: start: 20110414

REACTIONS (8)
  - DECREASED APPETITE [None]
  - BLOOD URINE PRESENT [None]
  - PAIN [None]
  - FOREIGN BODY [None]
  - GAIT DISTURBANCE [None]
  - NEPHROLITHIASIS [None]
  - BACK PAIN [None]
  - NAUSEA [None]
